FAERS Safety Report 9127349 (Version 1)
Quarter: 2013Q1

REPORT INFORMATION
  Report Type: Spontaneous
  Country: US (occurrence: US)
  Receive Date: 20130228
  Receipt Date: 20130228
  Transmission Date: 20140127
  Serious: No
  Sender: FDA-Public Use
  Company Number: US-GLAXOSMITHKLINE-A0970361A

PATIENT
  Age: 49 Year
  Sex: Female

DRUGS (2)
  1. LAMOTRIGINE [Suspect]
     Indication: BIPOLAR DISORDER
     Dosage: 100MG PER DAY
     Route: 048
     Dates: start: 20120220
  2. CYMBALTA [Concomitant]

REACTIONS (3)
  - Metrorrhagia [Recovering/Resolving]
  - Mouth ulceration [Unknown]
  - Paraesthesia oral [Unknown]
